FAERS Safety Report 8778628 (Version 5)
Quarter: 2014Q1

REPORT INFORMATION
  Report Type: Spontaneous
  Country: US (occurrence: US)
  Receive Date: 20120912
  Receipt Date: 20140114
  Transmission Date: 20141002
  Serious: Yes (Other)
  Sender: FDA-Public Use
  Company Number: US-ASTRAZENECA-2012SE60653

PATIENT
  Age: 81 Year
  Sex: Female

DRUGS (25)
  1. CRESTOR [Suspect]
     Indication: BLOOD CHOLESTEROL ABNORMAL
     Dosage: HALF TABLET BID
     Route: 048
     Dates: start: 20100331
  2. CRESTOR [Suspect]
     Indication: BLOOD CHOLESTEROL ABNORMAL
     Route: 048
  3. OMEPRAZOLE [Suspect]
     Route: 048
  4. MORPHINE DERIVATIVES [Suspect]
     Route: 065
  5. ASPIRIN [Concomitant]
     Route: 048
     Dates: start: 20090828
  6. CVS GLUCOSAMINE CHONDROITIN [Concomitant]
     Route: 048
     Dates: start: 20111003
  7. FISH OIL [Concomitant]
     Route: 048
  8. HYDROCHLOROTHIAZIDE [Concomitant]
     Route: 048
     Dates: start: 20090828
  9. HYDROCODONE-ACETAMINOPHEN [Concomitant]
     Dosage: 7.5 - 750 MG, 1 DF, EVERY SIX HOURS, AS NEEDED
     Route: 048
     Dates: start: 20100129
  10. LEVOTHYROXINE SODIUM [Concomitant]
     Dosage: ONE DF EVERY DAY (MONDAY-SATURDAY) ON SUNDAY 2 DF
     Route: 048
     Dates: start: 20090922
  11. METOPROLOL TARTRATE [Concomitant]
     Route: 048
     Dates: start: 20091002
  12. MULTIVITAMINS [Concomitant]
     Route: 048
  13. QUINAPRIL HCL [Concomitant]
     Route: 048
     Dates: start: 20100331
  14. RECLAST [Concomitant]
  15. SENOKOT [Concomitant]
     Dosage: PRN
  16. VITAMIN D [Concomitant]
     Route: 048
     Dates: start: 20100226
  17. ZETIA [Concomitant]
     Route: 048
     Dates: start: 20090828
  18. DIAZEPAM [Concomitant]
     Indication: ANXIETY DISORDER
     Route: 048
     Dates: start: 20120727
  19. COMBIVENT [Concomitant]
     Indication: EMPHYSEMA
     Dosage: 18-103 MCG/ACT, INHALE 2 PUFFS 4 TIMES DAILY AND AS NEEDED. DO NOT EXCEED 12 PUFFS IN 24 HOURS
     Route: 055
     Dates: start: 20111114
  20. TRIMO SAN [Concomitant]
     Dosage: INSERT APPLICATOR TWICE WEEKLY
     Route: 067
  21. OXAZEPAM [Concomitant]
     Route: 048
     Dates: start: 20091022
  22. NORVASC [Concomitant]
  23. FLAGYL [Concomitant]
  24. NAPROSYN [Concomitant]
  25. LOVENOX [Concomitant]

REACTIONS (8)
  - Pulmonary embolism [Unknown]
  - Myocardial infarction [Unknown]
  - Dysphonia [Unknown]
  - Vocal cord disorder [Unknown]
  - Rotator cuff syndrome [Unknown]
  - Dyspnoea [Unknown]
  - Off label use [Unknown]
  - Intentional drug misuse [Unknown]
